FAERS Safety Report 14225203 (Version 1)
Quarter: 2017Q4

REPORT INFORMATION
  Report Type: Spontaneous
  Country: US (occurrence: None)
  Receive Date: 20171122
  Receipt Date: 20171122
  Transmission Date: 20180321
  Serious: Yes (Other)
  Sender: FDA-Public Use
  Company Number: None

PATIENT
  Age: 23 Year
  Sex: Male

DRUGS (3)
  1. VIVITROL [Suspect]
     Active Substance: NALTREXONE
     Indication: DRUG DEPENDENCE
     Dosage: 1 SYRINGE EVERY 28 DAYS INJECTION IM
     Route: 030
     Dates: start: 20170925
  2. VISTARIL [Concomitant]
     Active Substance: HYDROXYZINE PAMOATE
  3. REMERON [Concomitant]
     Active Substance: MIRTAZAPINE

REACTIONS (2)
  - Dyspnoea [None]
  - Post procedural complication [None]

NARRATIVE: CASE EVENT DATE: 20171121
